FAERS Safety Report 13845025 (Version 1)
Quarter: 2017Q3

REPORT INFORMATION
  Report Type: Spontaneous
  Country: CH (occurrence: CH)
  Receive Date: 20170808
  Receipt Date: 20170808
  Transmission Date: 20171127
  Serious: Yes (Hospitalization)
  Sender: FDA-Public Use
  Company Number: CH-INCYTE CORPORATION-2017IN005247

PATIENT

DRUGS (5)
  1. INDERAL [Concomitant]
     Active Substance: PROPRANOLOL HYDROCHLORIDE
     Indication: HYPERTONIA
     Dosage: 1 DF, QD
     Route: 048
  2. JAKAVI [Suspect]
     Active Substance: RUXOLITINIB
     Indication: POLYCYTHAEMIA VERA
     Dosage: 1 DF, BID
     Route: 048
     Dates: start: 20170316, end: 20170505
  3. TORASEMID [Concomitant]
     Active Substance: TORSEMIDE
     Indication: RENAL FAILURE
     Dosage: 0.25 OT, BID
     Route: 048
  4. MARCOUMAR [Concomitant]
     Active Substance: PHENPROCOUMON
     Indication: EMBOLISM VENOUS
     Dosage: 0.5 OT, UNK
     Route: 048
  5. RENAGEL [Concomitant]
     Active Substance: SEVELAMER HYDROCHLORIDE
     Indication: RENAL FAILURE
     Dosage: 1 DF, TID
     Route: 048

REACTIONS (7)
  - Decreased appetite [Recovered/Resolved]
  - Haemodynamic instability [Recovered/Resolved]
  - Gastrointestinal disorder [Unknown]
  - Duodenal ulcer [Recovered/Resolved]
  - Haematemesis [Recovered/Resolved]
  - Abdominal pain [Recovered/Resolved]
  - Vomiting [Recovered/Resolved]

NARRATIVE: CASE EVENT DATE: 20170505
